FAERS Safety Report 7180138-9 (Version None)
Quarter: 2010Q4

REPORT INFORMATION
  Report Type: 
  Country: None (occurrence: None)
  Receive Date: 20101221
  Receipt Date: 20101207
  Transmission Date: 20110411
  Serious: Yes (Other)
  Sender: FDA-Public Use
  Company Number: FR-CELGENEUS-056-50794-10120667

PATIENT
  Age: 68 Year
  Sex: Female

DRUGS (2)
  1. VIDAZA [Suspect]
     Route: 065
  2. SULFITES [Suspect]
     Route: 065

REACTIONS (2)
  - HYPERSENSITIVITY [None]
  - NEURODERMATITIS [None]
